FAERS Safety Report 12623509 (Version 1)
Quarter: 2016Q3

REPORT INFORMATION
  Report Type: Spontaneous
  Country: BR (occurrence: BR)
  Receive Date: 20160804
  Receipt Date: 20160804
  Transmission Date: 20161109
  Serious: Yes (Other)
  Sender: FDA-Public Use
  Company Number: BR-ELI_LILLY_AND_COMPANY-BR201607011150

PATIENT
  Age: 76 Year
  Sex: Male
  Weight: 63 kg

DRUGS (2)
  1. HUMULIN N [Suspect]
     Active Substance: INSULIN HUMAN
     Indication: DIABETES MELLITUS
     Dosage: 40 IU, EACH MORNING
     Route: 058
  2. HUMULIN N [Suspect]
     Active Substance: INSULIN HUMAN
     Dosage: 20 IU, EACH EVENING
     Route: 058

REACTIONS (2)
  - Venous occlusion [Recovering/Resolving]
  - Incorrect dose administered [Unknown]

NARRATIVE: CASE EVENT DATE: 201604
